FAERS Safety Report 5312778-3 (Version None)
Quarter: 2007Q2

REPORT INFORMATION
  Report Type: 
  Country: None (occurrence: None)
  Receive Date: 20070430
  Receipt Date: 20070423
  Transmission Date: 20071010
  Serious: Yes (Life-Threatening, Hospitalization)
  Sender: FDA-Public Use
  Company Number: ES-BOEHRINGER INGELHEIM GMBH, GERMANY-2007-ES-00053ES

PATIENT
  Age: 47 Year
  Sex: Male

DRUGS (3)
  1. VIRAMUNE [Suspect]
     Indication: HIV INFECTION
     Route: 048
     Dates: start: 20070201, end: 20070306
  2. ZIDOVUDINE [Concomitant]
     Indication: HIV INFECTION
     Dates: end: 20070306
  3. EPIVIR [Concomitant]
     Indication: HIV INFECTION
     Route: 048
     Dates: end: 20070306

REACTIONS (9)
  - AFFECT LABILITY [None]
  - AGRANULOCYTOSIS [None]
  - ANOREXIA [None]
  - ASTHENIA [None]
  - DISCOMFORT [None]
  - LEUKOPENIA [None]
  - PYREXIA [None]
  - THROMBOCYTOPENIA [None]
  - WEIGHT DECREASED [None]
